FAERS Safety Report 21459490 (Version 1)
Quarter: 2022Q4

REPORT INFORMATION
  Report Type: Spontaneous
  Country: US (occurrence: US)
  Receive Date: 20221014
  Receipt Date: 20221014
  Transmission Date: 20230112
  Serious: Yes (Death, Other)
  Sender: FDA-Public Use
  Company Number: US-MYLANLABS-2022M1112637

PATIENT
  Age: 64 Year
  Sex: Male
  Weight: 104 kg

DRUGS (7)
  1. VALSARTAN [Suspect]
     Active Substance: VALSARTAN
     Indication: Hypertension
     Dosage: 320 MILLIGRAM
     Route: 065
     Dates: start: 20150616, end: 20160327
  2. VALSARTAN [Suspect]
     Active Substance: VALSARTAN
     Dosage: 320 MILLIGRAM
     Route: 065
     Dates: start: 20160722, end: 20170426
  3. VALSARTAN [Suspect]
     Active Substance: VALSARTAN
     Indication: Hypertension
     Dosage: 320 MILLIGRAM
     Route: 065
     Dates: start: 20140924, end: 20150517
  4. VALSARTAN [Suspect]
     Active Substance: VALSARTAN
     Indication: Hypertension
     Dosage: 320 MILLIGRAM
     Route: 065
     Dates: start: 20160414, end: 20160715
  5. VALSARTAN [Suspect]
     Active Substance: VALSARTAN
     Indication: Hypertension
     Dosage: 320 MILLIGRAM
     Route: 065
     Dates: start: 20170527, end: 20180914
  6. LOSARTAN [Suspect]
     Active Substance: LOSARTAN
     Indication: Hypertension
     Dosage: 100 MILLIGRAM
     Route: 065
     Dates: start: 20180907
  7. ALBUTEROL [Concomitant]
     Active Substance: ALBUTEROL
     Indication: Asthma
     Dosage: UNK (2 PUFFS WHEN NEEDED) STOP DATE :??-JAN-2019
     Route: 065
     Dates: start: 199303

REACTIONS (4)
  - Acute myeloid leukaemia [Fatal]
  - Bacteraemia [Fatal]
  - Mucosal inflammation [Fatal]
  - Pancytopenia [Fatal]

NARRATIVE: CASE EVENT DATE: 20181207
